FAERS Safety Report 21541582 (Version 1)
Quarter: 2022Q4

REPORT INFORMATION
  Report Type: Report from Study
  Country: US (occurrence: US)
  Receive Date: 20221102
  Receipt Date: 20221102
  Transmission Date: 20230112
  Serious: Yes (Hospitalization, Other)
  Sender: FDA-Public Use
  Company Number: US-002147023-NVSC2022US243116

PATIENT
  Sex: Female

DRUGS (1)
  1. PROMACTA [Suspect]
     Active Substance: ELTROMBOPAG OLAMINE
     Indication: Product used for unknown indication
     Dosage: 50 MG, QD (STARTED MEDICATION AROUND MID JUL)
     Route: 048

REACTIONS (5)
  - Cerebral haemorrhage [Unknown]
  - Incoherent [Unknown]
  - General physical condition abnormal [Unknown]
  - Bone marrow disorder [Unknown]
  - Drug ineffective [Unknown]
